FAERS Safety Report 4837850-3 (Version None)
Quarter: 2005Q4

REPORT INFORMATION
  Report Type: 
  Country: None (occurrence: None)
  Receive Date: 20051122
  Receipt Date: 20051122
  Transmission Date: 20060501
  Serious: Yes (Other)
  Sender: FDA-Public Use
  Company Number: None

PATIENT

DRUGS (1)
  1. BALANCED SALT SOLUTION [Suspect]

REACTIONS (2)
  - CORNEAL OEDEMA [None]
  - POST PROCEDURAL COMPLICATION [None]
